FAERS Safety Report 5315039-1 (Version None)
Quarter: 2007Q2

REPORT INFORMATION
  Report Type: 
  Country: None (occurrence: None)
  Receive Date: 20070502
  Receipt Date: 20070426
  Transmission Date: 20071010
  Serious: Yes (Death)
  Sender: FDA-Public Use
  Company Number: SK-AMGEN-UK150834

PATIENT
  Sex: Male
  Weight: 60 kg

DRUGS (5)
  1. DARBEPOETIN ALFA [Suspect]
     Indication: ANAEMIA OF MALIGNANT DISEASE
     Route: 058
     Dates: start: 20050729, end: 20050909
  2. TRAMADOL HCL [Concomitant]
     Route: 048
     Dates: start: 20050701, end: 20050913
  3. FLUNITRAZEPAM [Concomitant]
     Route: 048
     Dates: start: 20050908, end: 20050912
  4. PENTOXIFYLLINE [Concomitant]
     Route: 048
     Dates: start: 20050701, end: 20050913
  5. LACTULOSE [Concomitant]
     Route: 048
     Dates: start: 20050911, end: 20050913

REACTIONS (1)
  - PULMONARY EMBOLISM [None]
